FAERS Safety Report 9181504 (Version 4)
Quarter: 2013Q4

REPORT INFORMATION
  Report Type: Report from Study
  Country: US (occurrence: US)
  Receive Date: 20130322
  Receipt Date: 20131205
  Transmission Date: 20140711
  Serious: Yes (Hospitalization)
  Sender: FDA-Public Use
  Company Number: US-ELI_LILLY_AND_COMPANY-US201202002581

PATIENT
  Age: 80 Year
  Sex: Female

DRUGS (8)
  1. TERIPARATIDE [Suspect]
     Indication: OSTEOPOROSIS
     Dosage: 20 UG, QD
     Route: 058
     Dates: start: 20120101
  2. TERIPARATIDE [Suspect]
     Dosage: 20 UG, QD
     Route: 058
  3. TERIPARATIDE [Suspect]
     Dosage: 20 UG, QD
     Route: 058
  4. TERIPARATIDE [Suspect]
     Dosage: 20 UG, QD
     Route: 058
  5. ALBUTEROL [Concomitant]
     Indication: MYCOBACTERIUM AVIUM COMPLEX INFECTION
     Dosage: UNK, UNKNOWN
     Route: 055
  6. VITAMIN D NOS [Concomitant]
     Indication: PRODUCT USED FOR UNKNOWN INDICATION
     Route: 065
  7. LOSARTAN [Concomitant]
     Indication: BLOOD PRESSURE ABNORMAL
     Dosage: UNK, UNKNOWN
     Route: 065
  8. COUMADIN                           /00014802/ [Concomitant]
     Indication: PRODUCT USED FOR UNKNOWN INDICATION
     Route: 065

REACTIONS (24)
  - Atrial fibrillation [Unknown]
  - Cerebrovascular accident [Unknown]
  - Macular degeneration [Unknown]
  - Vitamin D decreased [Unknown]
  - Bone pain [Unknown]
  - Dizziness postural [Unknown]
  - Oropharyngeal pain [Unknown]
  - Gingival pain [Unknown]
  - Pain in extremity [Not Recovered/Not Resolved]
  - Sleep disorder due to a general medical condition [Unknown]
  - Dysphonia [Unknown]
  - Joint swelling [Unknown]
  - Underdose [Unknown]
  - Local swelling [Unknown]
  - Speech disorder [Unknown]
  - Visual field defect [Unknown]
  - Dementia Alzheimer^s type [Unknown]
  - Blood pressure increased [Recovered/Resolved]
  - Vertigo [Not Recovered/Not Resolved]
  - Arthralgia [Not Recovered/Not Resolved]
  - Dizziness [Not Recovered/Not Resolved]
  - Pain [Unknown]
  - Injection site bruising [Recovering/Resolving]
  - Nausea [Not Recovered/Not Resolved]
